FAERS Safety Report 24835342 (Version 4)
Quarter: 2025Q1

REPORT INFORMATION
  Report Type: Spontaneous
  Country: US (occurrence: US)
  Receive Date: 20250113
  Receipt Date: 20250321
  Transmission Date: 20250409
  Serious: Yes (Death)
  Sender: NOVARTIS
  Company Number: US-002147023-NVSC2025US004821

PATIENT
  Sex: Male
  Weight: 92 kg

DRUGS (1)
  1. PLUVICTO [Suspect]
     Active Substance: LUTETIUM LU-177 VIPIVOTIDE TETRAXETAN
     Indication: Prostate cancer
     Route: 042
     Dates: start: 20241023, end: 20241204

REACTIONS (4)
  - Prostate cancer [Fatal]
  - Malignant neoplasm progression [Fatal]
  - Cardiac failure [Fatal]
  - General physical health deterioration [Fatal]
